FAERS Safety Report 10407038 (Version 1)
Quarter: 2014Q3

REPORT INFORMATION
  Report Type: Spontaneous
  Country: US (occurrence: None)
  Receive Date: 20140822
  Receipt Date: 20140822
  Transmission Date: 20150326
  Serious: Yes (Hospitalization)
  Sender: FDA-Public Use
  Company Number: None

PATIENT
  Age: 83 Year
  Sex: Male
  Weight: 88 kg

DRUGS (2)
  1. GABAPENTIN. [Suspect]
     Active Substance: GABAPENTIN
     Indication: NEUROPATHY PERIPHERAL
     Dosage: 2 IN AM/PM AND 1 AT LUNCH  THREE TIMES DAILY TAKEN BY MOUTH
     Route: 048
     Dates: start: 20140814, end: 20140814
  2. GABAPENTIN. [Suspect]
     Active Substance: GABAPENTIN
     Indication: BURNING SENSATION
     Dosage: 2 IN AM/PM AND 1 AT LUNCH  THREE TIMES DAILY TAKEN BY MOUTH
     Route: 048
     Dates: start: 20140814, end: 20140814

REACTIONS (5)
  - Dizziness [None]
  - Asthenia [None]
  - Disorientation [None]
  - Unresponsive to stimuli [None]
  - Dysarthria [None]

NARRATIVE: CASE EVENT DATE: 20140814
